FAERS Safety Report 13266326 (Version 2)
Quarter: 2017Q3

REPORT INFORMATION
  Report Type: Spontaneous
  Country: IN (occurrence: IN)
  Receive Date: 20170223
  Receipt Date: 20170901
  Transmission Date: 20171127
  Serious: Yes (Death, Hospitalization)
  Sender: FDA-Public Use
  Company Number: IN-IMPAX LABORATORIES, INC-2017-IPXL-00384

PATIENT
  Age: 67 Year
  Sex: Female

DRUGS (3)
  1. PIRFENIDONE. [Concomitant]
     Active Substance: PIRFENIDONE
     Indication: PRODUCT USED FOR UNKNOWN INDICATION
     Dosage: UNK
     Route: 065
  2. N-ACETYLCYSTEINE [Concomitant]
     Active Substance: ACETYLCYSTEINE
     Indication: PRODUCT USED FOR UNKNOWN INDICATION
     Dosage: UNK
     Route: 065
  3. NITROFURANTOIN, MACROCRYSTALLINE IR [Suspect]
     Active Substance: NITROFURANTOIN
     Indication: URINARY TRACT INFECTION
     Dosage: UNK
     Route: 065

REACTIONS (2)
  - Alveolitis allergic [Fatal]
  - Respiratory failure [Fatal]
